APPROVED DRUG PRODUCT: BISOPROLOL FUMARATE
Active Ingredient: BISOPROLOL FUMARATE
Strength: 10MG
Dosage Form/Route: TABLET;ORAL
Application: A075831 | Product #002
Applicant: DASH PHARMACEUTICALS LLC A FULLY OWNED SUB OF NATCO PHARMA LTD
Approved: Dec 14, 2005 | RLD: No | RS: No | Type: DISCN